FAERS Safety Report 23338223 (Version 1)
Quarter: 2023Q4

REPORT INFORMATION
  Report Type: Spontaneous
  Country: US (occurrence: None)
  Receive Date: 20231223
  Receipt Date: 20231223
  Transmission Date: 20240110
  Serious: Yes (Disabling)
  Sender: FDA-Public Use
  Company Number: None

PATIENT
  Age: 18 Year
  Sex: Male
  Weight: 75.96 kg

DRUGS (1)
  1. SERTRALINE [Suspect]
     Active Substance: SERTRALINE HYDROCHLORIDE
     Dosage: OTHER QUANTITY : 30 TABLET(S);?
     Route: 048

REACTIONS (2)
  - Sexual dysfunction [None]
  - Depression [None]

NARRATIVE: CASE EVENT DATE: 20230416
